FAERS Safety Report 9177493 (Version 2)
Quarter: 2013Q2

REPORT INFORMATION
  Report Type: Spontaneous
  Country: PL (occurrence: None)
  Receive Date: 20130319
  Receipt Date: 20130415
  Transmission Date: 20140414
  Serious: Yes (Other)
  Sender: FDA-Public Use
  Company Number: AUR-APL-2013-02147

PATIENT
  Age: 55 Year
  Sex: Female
  Weight: 73 kg

DRUGS (13)
  1. GABAPENTIN [Suspect]
     Indication: SOFT TISSUE DISORDER
     Dosage: 100 MG (100 MG, 1 IN 1 D), PO
     Route: 048
     Dates: start: 20121210
  2. SEREVENT (SALMETEROL XINAFOATE) [Concomitant]
  3. PULMICORT (BUDESONIDE) [Concomitant]
  4. BUDERHIN (BUDESONIDE)? [Concomitant]
  5. FLONIDAN (LORATADINE) [Concomitant]
  6. STAVERAN (VERAPAMIL HYDROCHLORIDE) [Concomitant]
  7. CAPTOPRIL (CAPTOPRIL) [Concomitant]
  8. KALIPOZ (POTASSIUM CHLORIDE) [Concomitant]
  9. FUROSEMIDE (FUROSEMIDE) [Concomitant]
  10. RUTINOSCORBINE (ASCORUTIN) [Concomitant]
  11. NITRAZEPAM (NITRAZEPAM) [Concomitant]
  12. HYDROXYZINE (HYDROXYZINE) [Concomitant]
  13. OMEPRAZOLE (OMEPRAZOLE) [Concomitant]

REACTIONS (8)
  - Blood pressure increased [None]
  - Heart rate increased [None]
  - Dyspnoea [None]
  - Dizziness [None]
  - Balance disorder [None]
  - Nausea [None]
  - Alopecia [None]
  - Retching [None]
